FAERS Safety Report 16478225 (Version 2)
Quarter: 2019Q2

REPORT INFORMATION
  Report Type: Spontaneous
  Country: US (occurrence: US)
  Receive Date: 20190626
  Receipt Date: 20190628
  Transmission Date: 20190711
  Serious: Yes (Hospitalization, Other)
  Sender: FDA-Public Use
  Company Number: US-PFIZER INC-2019262749

PATIENT
  Sex: Female

DRUGS (1)
  1. DEPO-PROVERA [Suspect]
     Active Substance: MEDROXYPROGESTERONE ACETATE
     Indication: PERINATAL DEPRESSION
     Dosage: UNK

REACTIONS (6)
  - Thyroid disorder [Unknown]
  - Off label use [Unknown]
  - Secondary adrenocortical insufficiency [Unknown]
  - Tachycardia [Unknown]
  - Suicidal ideation [Recovered/Resolved]
  - Product use in unapproved indication [Unknown]
